FAERS Safety Report 8608772-7 (Version None)
Quarter: 2012Q3

REPORT INFORMATION
  Report Type: 
  Country: None (occurrence: None)
  Receive Date: 20120821
  Receipt Date: 20120814
  Transmission Date: 20120928
  Serious: No
  Sender: FDA-Public Use
  Company Number: US-ASTRAZENECA-2012SE57257

PATIENT
  Age: 56 Year
  Sex: Male
  Weight: 86.2 kg

DRUGS (4)
  1. CRESTOR [Suspect]
     Route: 048
     Dates: start: 20120101, end: 20120101
  2. CRESTOR [Suspect]
     Indication: HYPERLIPIDAEMIA
     Route: 048
     Dates: start: 20050101, end: 20120101
  3. ASPIRIN [Concomitant]
  4. VITAMIN D [Concomitant]

REACTIONS (1)
  - SUPRAVENTRICULAR EXTRASYSTOLES [None]
